FAERS Safety Report 6616499-6 (Version None)
Quarter: 2010Q1

REPORT INFORMATION
  Report Type: 
  Country: None (occurrence: None)
  Receive Date: 20100305
  Receipt Date: 20100224
  Transmission Date: 20100710
  Serious: Yes (Other)
  Sender: FDA-Public Use
  Company Number: GB-PFIZER INC-2009311896

PATIENT
  Age: 68 Year
  Sex: Male
  Weight: 125 kg

DRUGS (6)
  1. LIPITOR [Suspect]
     Indication: BLOOD CHOLESTEROL
     Dosage: 10 MG, 1X/DAY
     Route: 048
     Dates: start: 20091126, end: 20091203
  2. PARACETAMOL [Concomitant]
     Indication: PAIN
     Dosage: UNK
  3. ALENDRONIC ACID [Concomitant]
     Dosage: 70 MG, UNK
     Route: 048
     Dates: start: 20090113
  4. SALBUTAMOL [Concomitant]
     Dosage: 2 DF, 4X/DAY
     Route: 055
     Dates: start: 19910101
  5. FLUTICASONE [Concomitant]
     Dosage: 2 DF, 2X/DAY
     Route: 055
     Dates: start: 20040301
  6. SALMETEROL [Concomitant]
     Dosage: 2 DF, 2X/DAY
     Route: 055
     Dates: start: 20040301

REACTIONS (4)
  - ARTHRALGIA [None]
  - JOINT STIFFNESS [None]
  - MUSCLE SPASMS [None]
  - MYALGIA [None]
